FAERS Safety Report 9458145 (Version 1)
Quarter: 2013Q3

REPORT INFORMATION
  Report Type: Spontaneous
  Country: ES (occurrence: ES)
  Receive Date: 20130814
  Receipt Date: 20130814
  Transmission Date: 20140515
  Serious: Yes (Hospitalization, Other)
  Sender: FDA-Public Use
  Company Number: ES-JNJFOC-20130803380

PATIENT
  Age: 62 Year
  Sex: Female

DRUGS (9)
  1. FENTANYL [Suspect]
     Indication: PAIN
     Route: 062
  2. MORPHINE CHLORIDE [Suspect]
     Indication: DYSPNOEA
     Route: 042
  3. MORPHINE CHLORIDE [Suspect]
     Indication: DYSPNOEA
     Route: 042
  4. MORPHINE CHLORIDE [Suspect]
     Indication: PAIN
     Route: 042
  5. MORPHINE CHLORIDE [Suspect]
     Indication: PAIN
     Route: 042
  6. DEXAMETHASONE [Concomitant]
     Route: 065
  7. PANTOPRAZOLE [Concomitant]
     Route: 065
  8. HALOPERIDOL [Concomitant]
     Indication: AGITATION
     Route: 065
  9. HALOPERIDOL [Concomitant]
     Indication: VOMITING
     Route: 065

REACTIONS (4)
  - Delirium [Recovering/Resolving]
  - Ileus paralytic [Recovering/Resolving]
  - Drug resistance [Unknown]
  - Vomiting [Recovered/Resolved]
